FAERS Safety Report 6096848-0 (Version None)
Quarter: 2009Q1

REPORT INFORMATION
  Report Type: 
  Country: None (occurrence: None)
  Receive Date: 20090226
  Receipt Date: 20090226
  Transmission Date: 20090719
  Serious: Yes (Hospitalization)
  Sender: FDA-Public Use
  Company Number: None

PATIENT
  Age: 86 Year
  Sex: Female

DRUGS (3)
  1. METHYLPREDNISOLONE ACETATE [Suspect]
     Indication: ANALGESIA
     Dosage: ONCE INTRA-ARTICULAR
     Route: 014
     Dates: start: 20081201, end: 20090116
  2. METHYLPREDNISOLONE ACETATE [Suspect]
     Indication: JOINT INJECTION
     Dosage: ONCE INTRA-ARTICULAR
     Route: 014
     Dates: start: 20081201, end: 20090116
  3. LIDOCAINE 1% INJ [Suspect]
     Indication: LOCAL ANAESTHESIA
     Dosage: ONCE INTRA-ARTICULAR
     Route: 014
     Dates: start: 20081201, end: 20090116

REACTIONS (4)
  - ARTHRITIS BACTERIAL [None]
  - INJECTION SITE CELLULITIS [None]
  - INJECTION SITE INFECTION [None]
  - PRODUCT QUALITY ISSUE [None]
